FAERS Safety Report 7058356-X (Version None)
Quarter: 2010Q4

REPORT INFORMATION
  Report Type: 
  Country: None (occurrence: None)
  Receive Date: 20101022
  Receipt Date: 20101015
  Transmission Date: 20110411
  Serious: No
  Sender: FDA-Public Use
  Company Number: US-PFIZER INC-2010103673

PATIENT
  Sex: Male

DRUGS (2)
  1. NARDIL [Suspect]
     Dosage: UNK
  2. WELLBUTRIN [Suspect]
     Dosage: UNK

REACTIONS (2)
  - EJACULATION DISORDER [None]
  - ERECTILE DYSFUNCTION [None]
